FAERS Safety Report 7411909-9 (Version None)
Quarter: 2011Q2

REPORT INFORMATION
  Report Type: 
  Country: None (occurrence: None)
  Receive Date: 20110408
  Receipt Date: 20110408
  Transmission Date: 20111010
  Serious: Yes (Life-Threatening)
  Sender: FDA-Public Use
  Company Number: None

PATIENT
  Age: 56 Year
  Sex: Female
  Weight: 67 kg

DRUGS (1)
  1. OMEPRAZOLE [Suspect]
     Indication: GASTROOESOPHAGEAL REFLUX DISEASE
     Dosage: 20 MG EVERY DAY PO
     Route: 048
     Dates: start: 20100924, end: 20101108

REACTIONS (3)
  - TUBULOINTERSTITIAL NEPHRITIS [None]
  - DIABETIC NEPHROPATHY [None]
  - RENAL FAILURE ACUTE [None]
